FAERS Safety Report 9959970 (Version 1)
Quarter: 2014Q1

REPORT INFORMATION
  Report Type: Report from Study
  Country: US (occurrence: US)
  Receive Date: 20140305
  Receipt Date: 20140305
  Transmission Date: 20141002
  Serious: No
  Sender: FDA-Public Use
  Company Number: US-ABBVIE-13P-163-1101370-00

PATIENT
  Age: 57 Year
  Sex: Female

DRUGS (5)
  1. HUMIRA [Suspect]
     Indication: COLITIS ULCERATIVE
     Dates: start: 20130523
  2. HUMIRA [Suspect]
     Dates: start: 20130606
  3. ASACOL [Concomitant]
     Indication: PRODUCT USED FOR UNKNOWN INDICATION
     Route: 048
  4. BENICAR [Concomitant]
     Route: 048
  5. SIMVASTATIN [Concomitant]
     Indication: PRODUCT USED FOR UNKNOWN INDICATION
     Route: 048

REACTIONS (1)
  - Fatigue [Not Recovered/Not Resolved]
